FAERS Safety Report 10244261 (Version 1)
Quarter: 2014Q2

REPORT INFORMATION
  Report Type: Spontaneous
  Country: US (occurrence: US)
  Receive Date: 20140618
  Receipt Date: 20140618
  Transmission Date: 20141212
  Serious: Yes (Other)
  Sender: FDA-Public Use
  Company Number: US-BAYER-2014-091108

PATIENT
  Age: 22 Year
  Sex: Female

DRUGS (1)
  1. MIRENA [Suspect]
     Dosage: 20 MCG/24HR, CONT
     Route: 015
     Dates: start: 201401

REACTIONS (11)
  - Suicidal ideation [None]
  - Depression [None]
  - Mood swings [None]
  - Weight loss poor [None]
  - Abdominal distension [None]
  - Abdominal discomfort [None]
  - Fatigue [None]
  - Abdominal pain [None]
  - Dyspareunia [None]
  - Alopecia [None]
  - Libido decreased [None]
